FAERS Safety Report 12690289 (Version 2)
Quarter: 2016Q3

REPORT INFORMATION
  Report Type: Spontaneous
  Country: NP (occurrence: NP)
  Receive Date: 20160826
  Receipt Date: 20160906
  Transmission Date: 20161109
  Serious: Yes (Life-Threatening, Hospitalization)
  Sender: FDA-Public Use
  Company Number: NP-PFIZER INC-2016405210

PATIENT
  Age: 23 Year
  Sex: Female

DRUGS (1)
  1. AMLODIPINE BESILATE [Suspect]
     Active Substance: AMLODIPINE BESYLATE
     Indication: SUICIDAL IDEATION
     Dosage: 220 MG, SINGLE
     Route: 048

REACTIONS (7)
  - Suicidal ideation [Recovered/Resolved]
  - Hypotension [Recovered/Resolved]
  - Respiratory alkalosis [Recovered/Resolved]
  - Myocardial depression [Recovered/Resolved]
  - Swelling face [Recovered/Resolved]
  - Overdose [Recovered/Resolved]
  - Non-cardiogenic pulmonary oedema [Recovered/Resolved]
